FAERS Safety Report 21227607 (Version 1)
Quarter: 2022Q3

REPORT INFORMATION
  Report Type: Spontaneous
  Country: TR (occurrence: TR)
  Receive Date: 20220818
  Receipt Date: 20220818
  Transmission Date: 20221026
  Serious: Yes (Other)
  Sender: FDA-Public Use
  Company Number: TR-SUN PHARMACEUTICAL INDUSTRIES LTD-2022RR-349123

PATIENT
  Age: 46 Year
  Sex: Female

DRUGS (4)
  1. ARIPIPRAZOLE [Suspect]
     Active Substance: ARIPIPRAZOLE
     Indication: Depressive symptom
     Dosage: 2.5 MILLIGRAM, DAILY
     Route: 065
  2. MIRTAZAPINE [Suspect]
     Active Substance: MIRTAZAPINE
     Indication: Depressive symptom
     Dosage: 30 MILLIGRAM, DAILY
     Route: 065
  3. PAROXETINE [Suspect]
     Active Substance: PAROXETINE
     Indication: Major depression
     Dosage: 10 MILLIGRAM, DAILY
     Route: 065
  4. TIANEPTINE [Suspect]
     Active Substance: TIANEPTINE
     Indication: Depressive symptom
     Dosage: 37.5 MILLIGRAM, DAILY
     Route: 065

REACTIONS (7)
  - Hyponatraemia [Unknown]
  - Nausea [Unknown]
  - Dizziness [Unknown]
  - Confusional state [Unknown]
  - Muscle contractions involuntary [Unknown]
  - Headache [Unknown]
  - Drug ineffective [Unknown]
